FAERS Safety Report 7913277-2 (Version None)
Quarter: 2011Q4

REPORT INFORMATION
  Report Type: 
  Country: None (occurrence: None)
  Receive Date: 20111114
  Receipt Date: 20111110
  Transmission Date: 20120403
  Serious: Yes (Life-Threatening, Other)
  Sender: FDA-Public Use
  Company Number: ES-ASTRAZENECA-2011SE66147

PATIENT
  Age: 19403 Day
  Sex: Male
  Weight: 98 kg

DRUGS (3)
  1. SEROQUEL XR [Suspect]
     Dosage: OVERDOSE WITH 50 TABLETS OF SEROQUEL 400MG; TOTAL DOSE 20 G
     Route: 048
  2. DEPAKENE [Concomitant]
     Indication: BIPOLAR DISORDER RELAPSE PROPHYLAXIS
     Route: 048
  3. CLORAZEPATE DIPOTASSIUM [Concomitant]
     Indication: ANXIOLYTIC THERAPY
     Route: 048

REACTIONS (3)
  - ACUTE RESPIRATORY FAILURE [None]
  - SINUS TACHYCARDIA [None]
  - OVERDOSE [None]
